FAERS Safety Report 5830367-9 (Version None)
Quarter: 2008Q3

REPORT INFORMATION
  Report Type: 
  Country: None (occurrence: None)
  Receive Date: 20080801
  Receipt Date: 20080725
  Transmission Date: 20090109
  Serious: Yes (Death)
  Sender: FDA-Public Use
  Company Number: US-ALLERGAN-0805994US

PATIENT
  Age: 35 Year
  Sex: Female
  Weight: 64.853 kg

DRUGS (5)
  1. BOTOX COSMETIC [Suspect]
     Indication: SKIN WRINKLING
     Dosage: 40 UNITS, SINGLE
     Route: 030
     Dates: start: 20080516, end: 20080516
  2. BOTOX COSMETIC [Suspect]
     Indication: TENSION HEADACHE
  3. METHADONE HCL [Suspect]
     Indication: DRUG USE FOR UNKNOWN INDICATION
  4. REMERON [Concomitant]
     Indication: DRUG USE FOR UNKNOWN INDICATION
     Dates: start: 20080501
  5. SEROQUEL [Concomitant]
     Indication: DRUG USE FOR UNKNOWN INDICATION
     Dosage: 25 MG, UNK
     Dates: start: 20080401

REACTIONS (1)
  - RESPIRATORY ARREST [None]
